FAERS Safety Report 6202140-3 (Version None)
Quarter: 2009Q2

REPORT INFORMATION
  Report Type: 
  Country: None (occurrence: None)
  Receive Date: 20090520
  Receipt Date: 20090508
  Transmission Date: 20091009
  Serious: Yes (Disabling, Other)
  Sender: FDA-Public Use
  Company Number: 235268K09USA

PATIENT
  Age: 55 Year
  Sex: Female

DRUGS (4)
  1. REBIF [Suspect]
     Indication: MULTIPLE SCLEROSIS
     Dosage: 44 MCG, 3 IN 1 WEEKS, SUBCUTANEOUS
     Route: 058
     Dates: start: 20070828
  2. FLU SHOT (INFLUENZA VIRUS VACCINE POLYVALENT) [Suspect]
     Indication: INFLUENZA
     Dosage: ONCE
     Dates: start: 20080101, end: 20080101
  3. UNSPECIFIED MEDICATION (ALL OTHER THERAPEUTIC PRODUCTS) [Concomitant]
  4. IMITREX [Concomitant]

REACTIONS (5)
  - DEAFNESS [None]
  - DRUG INTERACTION [None]
  - GLOBAL AMNESIA [None]
  - INJECTION SITE DISCOLOURATION [None]
  - MIGRAINE [None]
